FAERS Safety Report 14300099 (Version 7)
Quarter: 2018Q2

REPORT INFORMATION
  Report Type: Report from Study
  Country: FR (occurrence: FR)
  Receive Date: 20171219
  Receipt Date: 20180530
  Transmission Date: 20180711
  Serious: Yes (Life-Threatening, Disabling, Other)
  Sender: FDA-Public Use
  Company Number: FR-SHIRE-FR201733736

PATIENT

DRUGS (30)
  1. CYCLOPHOSPHAMIDE. [Suspect]
     Active Substance: CYCLOPHOSPHAMIDE
     Indication: ACUTE LYMPHOCYTIC LEUKAEMIA
     Dosage: 880 MG, 1X/DAY:QD
     Route: 042
     Dates: start: 20171116, end: 20171116
  2. ZOPHREN                            /00955301/ [Concomitant]
     Active Substance: ONDANSETRON
     Indication: PRODUCT USED FOR UNKNOWN INDICATION
  3. MIDAZOLAM [Concomitant]
     Active Substance: MIDAZOLAM HYDROCHLORIDE
     Indication: ANAESTHETIC COMPLICATION
  4. METHOTREXATE. [Suspect]
     Active Substance: METHOTREXATE
     Indication: ACUTE LYMPHOCYTIC LEUKAEMIA
     Dosage: 12 MG, 1X/DAY:QD
     Route: 037
     Dates: start: 20171118, end: 20171118
  5. SUFENTA [Concomitant]
     Active Substance: SUFENTANIL CITRATE
     Indication: ANAESTHETIC COMPLICATION
  6. VINCRISTINE [Suspect]
     Active Substance: VINCRISTINE
     Indication: ACUTE LYMPHOCYTIC LEUKAEMIA
     Dosage: 1.3 MG, 1X/DAY:QD
     Route: 042
     Dates: start: 20171130, end: 20171130
  7. LARGACTIL                          /00011901/ [Concomitant]
     Active Substance: CHLORPROMAZINE
     Indication: PRODUCT USED FOR UNKNOWN INDICATION
  8. CATAPRESSAN                        /00171101/ [Concomitant]
     Active Substance: CLONIDINE
     Indication: HYPERTENSION
  9. CONTRAMAL [Concomitant]
     Active Substance: TRAMADOL HYDROCHLORIDE
     Indication: PRODUCT USED FOR UNKNOWN INDICATION
  10. SPASFON                            /00765801/ [Concomitant]
     Active Substance: PHLOROGLUCINOL\1,3,5-TRIMETHOXYBENZENE
     Indication: PRODUCT USED FOR UNKNOWN INDICATION
  11. ATARAX [Concomitant]
     Active Substance: HYDROXYZINE HYDROCHLORIDE
     Indication: PRODUCT USED FOR UNKNOWN INDICATION
  12. PARACETAMOL [Concomitant]
     Active Substance: ACETAMINOPHEN
     Indication: PAIN
  13. OMEPRAZOLE. [Concomitant]
     Active Substance: OMEPRAZOLE
     Indication: PRODUCT USED FOR UNKNOWN INDICATION
  14. BACTRIM [Concomitant]
     Active Substance: SULFAMETHOXAZOLE\TRIMETHOPRIM
     Indication: INFECTION
  15. CORTANCYL [Concomitant]
     Active Substance: PREDNISONE
     Indication: PRODUCT USED FOR UNKNOWN INDICATION
  16. URSOLVAN [Concomitant]
     Active Substance: URSODIOL
     Indication: PRODUCT USED FOR UNKNOWN INDICATION
  17. PEGASPARGASE [Suspect]
     Active Substance: PEGASPARGASE
     Indication: ACUTE LYMPHOCYTIC LEUKAEMIA
     Dosage: 2175 IU, 1X/DAY:QD
     Route: 042
     Dates: start: 20171130, end: 20171130
  18. PURINETHOL [Suspect]
     Active Substance: MERCAPTOPURINE
     Indication: ACUTE LYMPHOCYTIC LEUKAEMIA
     Dosage: 50 MG, 1X/DAY:QD
     Route: 048
     Dates: start: 20171116, end: 20171129
  19. LANSOYL [Concomitant]
     Active Substance: MINERAL OIL
     Indication: PRODUCT USED FOR UNKNOWN INDICATION
  20. LARGACTIL                          /00011901/ [Concomitant]
     Active Substance: CHLORPROMAZINE
     Indication: NEUROLEPTIC MALIGNANT SYNDROME
  21. HYDROCORTISONE. [Suspect]
     Active Substance: HYDROCORTISONE
     Indication: ACUTE LYMPHOCYTIC LEUKAEMIA
     Dosage: 15 MG, 1X/DAY:QD
     Route: 037
     Dates: start: 20171118, end: 20171118
  22. ZOPHREN                            /00955301/ [Concomitant]
     Active Substance: ONDANSETRON
     Indication: NAUSEA
  23. PROPOFOL. [Concomitant]
     Active Substance: PROPOFOL
     Indication: ANAESTHETIC COMPLICATION
  24. MORPHINE [Concomitant]
     Active Substance: MORPHINE
     Indication: PRODUCT USED FOR UNKNOWN INDICATION
  25. CYTARABINE. [Suspect]
     Active Substance: CYTARABINE
     Indication: ACUTE LYMPHOCYTIC LEUKAEMIA
     Dosage: 65 MG, 1X/DAY:QD
     Route: 042
     Dates: start: 20171118, end: 20171128
  26. CYTARABINE. [Suspect]
     Active Substance: CYTARABINE
     Dosage: 30 MG, 1X/DAY:QD
     Route: 037
     Dates: start: 20171118, end: 20171118
  27. BEVITINE [Concomitant]
     Active Substance: THIAMINE
     Indication: PRODUCT USED FOR UNKNOWN INDICATION
  28. BECILAN [Concomitant]
     Active Substance: PYRIDOXINE
     Indication: PRODUCT USED FOR UNKNOWN INDICATION
  29. MEROPENEM. [Concomitant]
     Active Substance: MEROPENEM
     Indication: INFECTION
  30. VANCOMYCIN [Concomitant]
     Active Substance: VANCOMYCIN
     Indication: INFECTION

REACTIONS (2)
  - Pancreatitis acute [Recovered/Resolved with Sequelae]
  - Escherichia sepsis [Recovered/Resolved]

NARRATIVE: CASE EVENT DATE: 20171206
